FAERS Safety Report 4299549-4 (Version None)
Quarter: 2004Q1

REPORT INFORMATION
  Report Type: 
  Country: None (occurrence: None)
  Receive Date: 20040217
  Receipt Date: 20040204
  Transmission Date: 20041129
  Serious: Yes (Hospitalization)
  Sender: FDA-Public Use
  Company Number: 2004198310US

PATIENT
  Age: 72 Year
  Sex: Female
  Weight: 61.2 kg

DRUGS (2)
  1. NICOTROL [Suspect]
     Indication: SMOKING CESSATION THERAPY
     Dosage: 15 MG, QD, TRANSDERMAL
     Route: 062
     Dates: start: 20031231, end: 20040204
  2. ANTIBIOTICS [Suspect]
     Indication: PNEUMONIA
     Dates: start: 20031231

REACTIONS (2)
  - ASTHENIA [None]
  - PYREXIA [None]
